FAERS Safety Report 18292135 (Version 2)
Quarter: 2020Q4

REPORT INFORMATION
  Report Type: Spontaneous
  Country: FR (occurrence: FR)
  Receive Date: 20200921
  Receipt Date: 20201125
  Transmission Date: 20210113
  Serious: Yes (Death, Life-Threatening, Hospitalization, Other)
  Sender: FDA-Public Use
  Company Number: FR-BRISTOL-MYERS SQUIBB COMPANY-BMS-2020-076645

PATIENT
  Age: 25 Year
  Sex: Male

DRUGS (1)
  1. OPDIVO [Suspect]
     Active Substance: NIVOLUMAB
     Indication: MALIGNANT MELANOMA STAGE IV
     Dosage: 240 MILLIGRAM, EVERY 15 DAYS
     Route: 065

REACTIONS (3)
  - Oedema [Fatal]
  - Off label use [Unknown]
  - Hepatitis [Unknown]
